FAERS Safety Report 10075507 (Version 1)
Quarter: 2014Q2

REPORT INFORMATION
  Report Type: Spontaneous
  Country: US (occurrence: US)
  Receive Date: 20140414
  Receipt Date: 20140414
  Transmission Date: 20141212
  Serious: Yes (Hospitalization)
  Sender: FDA-Public Use
  Company Number: US-ROCHE-1383296

PATIENT
  Sex: Female

DRUGS (6)
  1. XOLAIR [Suspect]
     Indication: PRODUCT USED FOR UNKNOWN INDICATION
     Route: 065
     Dates: start: 20140102
  2. PROTONIX (UNITED STATES) [Concomitant]
  3. ZOCOR [Concomitant]
  4. VIVELLE-DOT [Concomitant]
  5. ADVAIR [Concomitant]
  6. ORACEA [Concomitant]

REACTIONS (7)
  - Nausea [Unknown]
  - Dizziness [Unknown]
  - Palpitations [Unknown]
  - Diarrhoea [Unknown]
  - Constipation [Unknown]
  - Gastrointestinal infection [Unknown]
  - Pain [Unknown]
